FAERS Safety Report 7469263-2 (Version None)
Quarter: 2011Q2

REPORT INFORMATION
  Report Type: 
  Country: None (occurrence: None)
  Receive Date: 20110429
  Receipt Date: 20110413
  Transmission Date: 20111010
  Serious: Yes (Hospitalization, Other)
  Sender: FDA-Public Use
  Company Number: 2011040073

PATIENT
  Age: 43 Year
  Sex: Female

DRUGS (1)
  1. ZOLPIDEM [Suspect]
     Indication: INSOMNIA
     Dosage: 50-60 MG (NIGHTLY); 200-400 MG (NIGHTLY)

REACTIONS (11)
  - TONIC CONVULSION [None]
  - DRUG WITHDRAWAL SYNDROME [None]
  - RESTLESSNESS [None]
  - DRUG DEPENDENCE [None]
  - ANXIETY [None]
  - PSYCHOMOTOR RETARDATION [None]
  - DRUG TOLERANCE [None]
  - LOSS OF CONSCIOUSNESS [None]
  - CONFUSIONAL STATE [None]
  - DRUG WITHDRAWAL CONVULSIONS [None]
  - INSOMNIA [None]
